FAERS Safety Report 6474723-7 (Version None)
Quarter: 2009Q4

REPORT INFORMATION
  Report Type: 
  Country: None (occurrence: None)
  Receive Date: 20091204
  Receipt Date: 20091125
  Transmission Date: 20100525
  Serious: Yes (Hospitalization)
  Sender: FDA-Public Use
  Company Number: B0590314A

PATIENT
  Sex: Male
  Weight: 64 kg

DRUGS (2)
  1. AVANDIA [Suspect]
     Dosage: 4MG TWICE PER DAY
     Route: 048
     Dates: start: 20070701
  2. ENDOTELON [Suspect]
     Indication: EYE DISORDER
     Dosage: 150MG TWICE PER DAY
     Route: 048
     Dates: start: 20070101, end: 20090826

REACTIONS (2)
  - ECZEMA [None]
  - PHOTOSENSITIVITY REACTION [None]
